FAERS Safety Report 9201889 (Version 1)
Quarter: 2013Q1

REPORT INFORMATION
  Report Type: Spontaneous
  Country: US (occurrence: None)
  Receive Date: 20130328
  Receipt Date: 20130328
  Transmission Date: 20140127
  Serious: Yes (Hospitalization)
  Sender: FDA-Public Use
  Company Number: 2013-05086

PATIENT
  Age: 62 Year
  Sex: Male

DRUGS (9)
  1. SPIRONOLACTONE [Suspect]
     Indication: PRODUCT USED FOR UNKNOWN INDICATION
  2. SAXAGLIPTIN [Suspect]
     Indication: TYPE 2 DIABETES MELLITUS
     Dates: start: 20101123
  3. HUMALOG (INSULIN LISPRO) [Suspect]
  4. LANTUS (INSULIN GLARGINE) [Suspect]
     Indication: TYPE 2 DIABETES MELLITUS
  5. LISINOPRIL [Suspect]
     Indication: PRODUCT USED FOR UNKNOWN INDICATION
  6. METOPROLOL [Suspect]
  7. ASPIRIN (ACETYLSALICYLIC ACID) [Concomitant]
  8. SEROQUEL (QUETIAPINE FUMARATE) [Concomitant]
  9. EZETIMIBE (EZETIMIBE) (TABLET) [Concomitant]

REACTIONS (8)
  - Orthostatic hypotension [None]
  - Acute prerenal failure [None]
  - Asthenia [None]
  - Fall [None]
  - Vision blurred [None]
  - Benign prostatic hyperplasia [None]
  - Vitamin B complex deficiency [None]
  - Mobility decreased [None]
